FAERS Safety Report 5659993-7 (Version None)
Quarter: 2008Q1

REPORT INFORMATION
  Report Type: 
  Country: None (occurrence: None)
  Receive Date: 20080306
  Receipt Date: 20080221
  Transmission Date: 20080703
  Serious: Yes (Hospitalization)
  Sender: FDA-Public Use
  Company Number: 1-15813214

PATIENT
  Age: 92 Year
  Sex: Male
  Weight: 48.9885 kg

DRUGS (1)
  1. FENTANYL [Suspect]
     Indication: PAIN
     Dosage: 25 MCG/HR, TRANSDERMAL
     Route: 062
     Dates: start: 20080101, end: 20080219

REACTIONS (4)
  - DEHYDRATION [None]
  - DRUG INEFFECTIVE [None]
  - NAUSEA [None]
  - VOMITING [None]
